FAERS Safety Report 9767427 (Version 2)
Quarter: 2013Q4

REPORT INFORMATION
  Report Type: Report from Study
  Country: TH (occurrence: TH)
  Receive Date: 20131217
  Receipt Date: 20131217
  Transmission Date: 20140711
  Serious: Yes (Death)
  Sender: FDA-Public Use
  Company Number: TH-ASTELLAS-2013JP013207

PATIENT
  Age: 34 Year
  Sex: Female
  Weight: 48.8 kg

DRUGS (3)
  1. TACROLIMUS CAPSULES [Suspect]
     Indication: LUPUS NEPHRITIS
     Dosage: 2.25 MG, Q12 HOURS
     Route: 048
     Dates: start: 20131007
  2. TACROLIMUS CAPSULES [Suspect]
     Dosage: 2 MG, Q12 HOURS
     Route: 048
     Dates: end: 20131120
  3. PREDNISOLONE [Concomitant]
     Dosage: UNK
     Route: 065
     Dates: start: 201308, end: 20131203

REACTIONS (2)
  - Fatigue [Fatal]
  - Lung infiltration [Fatal]
